FAERS Safety Report 8614244-6 (Version None)
Quarter: 2012Q3

REPORT INFORMATION
  Report Type: 
  Country: None (occurrence: None)
  Receive Date: 20120813
  Receipt Date: 20120813
  Transmission Date: 20120928
  Serious: Yes (Hospitalization)
  Sender: FDA-Public Use
  Company Number: None

PATIENT
  Age: 90 Year
  Sex: Male
  Weight: 58.1 kg

DRUGS (2)
  1. ACETAMINOPHEN/HYDROCODONE BITARTRATE [Suspect]
     Indication: PAIN
     Dosage: 500/5 MG TID PO
     Route: 048
     Dates: start: 20120730, end: 20120801
  2. BUMETANIDE [Suspect]
     Indication: HYPERTENSION
     Dosage: 1 MG BID PO
     Route: 048
     Dates: start: 20111104, end: 20120801

REACTIONS (6)
  - CONTUSION [None]
  - NAUSEA [None]
  - DEHYDRATION [None]
  - MEMORY IMPAIRMENT [None]
  - VOMITING [None]
  - FALL [None]
